FAERS Safety Report 6154408-7 (Version None)
Quarter: 2009Q2

REPORT INFORMATION
  Report Type: 
  Country: None (occurrence: None)
  Receive Date: 20090414
  Receipt Date: 20090407
  Transmission Date: 20091009
  Serious: Yes (Other)
  Sender: FDA-Public Use
  Company Number: US-ASTRAZENECA-2009UW03560

PATIENT
  Age: 6565 Day
  Sex: Male
  Weight: 87.1 kg

DRUGS (6)
  1. SEROQUEL [Suspect]
     Indication: AGGRESSION
     Route: 048
     Dates: start: 20080829
  2. DEPAKOTE ER [Concomitant]
     Indication: AGGRESSION
     Dosage: 1250 MG DAILY
     Route: 048
  3. DEPAKOTE ER [Concomitant]
     Indication: INTENTIONAL SELF-INJURY
     Dosage: 1250 MG DAILY
     Route: 048
  4. TRAZODONE HCL [Concomitant]
     Indication: SLEEP DISORDER
     Dosage: 100 MG, 1/2 OR WHOLE DAILY
     Route: 048
  5. KLONOPIN [Concomitant]
     Dosage: 0.2 MG
  6. CLONIDINE [Concomitant]
     Indication: IMPULSIVE BEHAVIOUR
     Route: 048

REACTIONS (1)
  - WHITE BLOOD CELL COUNT DECREASED [None]
